FAERS Safety Report 11888018 (Version 1)
Quarter: 2016Q1

REPORT INFORMATION
  Report Type: Spontaneous
  Country: US (occurrence: None)
  Receive Date: 20160104
  Receipt Date: 20160104
  Transmission Date: 20160526
  Serious: No
  Sender: FDA-Public Use
  Company Number: None

PATIENT
  Age: 70 Year
  Sex: Male
  Weight: 92.53 kg

DRUGS (1)
  1. METFORMIN HYDROCHLORIDE. [Suspect]
     Active Substance: METFORMIN HYDROCHLORIDE
     Indication: TYPE 2 DIABETES MELLITUS
     Dosage: TAKEN BY MOUTH

REACTIONS (4)
  - Diabetes mellitus inadequate control [None]
  - Product quality issue [None]
  - Product formulation issue [None]
  - Medication residue present [None]

NARRATIVE: CASE EVENT DATE: 20160102
